FAERS Safety Report 5528556-6 (Version None)
Quarter: 2007Q4

REPORT INFORMATION
  Report Type: 
  Country: None (occurrence: None)
  Receive Date: 20071121
  Receipt Date: 20071119
  Transmission Date: 20080405
  Serious: Yes (Death, Life-Threatening)
  Sender: FDA-Public Use
  Company Number: 2007S1000185

PATIENT
  Age: 13 Day
  Sex: Female
  Weight: 0.95 kg

DRUGS (13)
  1. NITRIC OXIDE [Suspect]
     Indication: LUNG DISORDER
     Dosage: 5 PPM; CONT; INH
     Route: 055
     Dates: start: 20070916, end: 20071008
  2. NITRIC OXIDE [Suspect]
     Indication: PROPHYLAXIS
     Dosage: 5 PPM; CONT; INH
     Route: 055
     Dates: start: 20070916, end: 20071008
  3. IMIPENEM [Concomitant]
  4. FUROSEMIDE [Concomitant]
  5. TRAMADOL HCL [Concomitant]
  6. MIDAZOLAM HCL [Concomitant]
  7. DOPAMINE HCL [Concomitant]
  8. DOBUTAMINE HCL [Concomitant]
  9. INSULIN [Concomitant]
  10. FENTANYL [Concomitant]
  11. OMEPRAZOLE [Concomitant]
  12. MIDAZOLAM HCL [Concomitant]
  13. NORADRENALINE [Concomitant]

REACTIONS (3)
  - BRADYCARDIA [None]
  - NECROTISING ENTEROCOLITIS NEONATAL [None]
  - NEONATAL HYPOTENSION [None]
